FAERS Safety Report 6220060-5 (Version None)
Quarter: 2009Q2

REPORT INFORMATION
  Report Type: 
  Country: None (occurrence: None)
  Receive Date: 20090609
  Receipt Date: 20090602
  Transmission Date: 20091009
  Serious: Yes (Life-Threatening, Hospitalization)
  Sender: FDA-Public Use
  Company Number: PHHY2009AT15933

PATIENT
  Sex: Male
  Weight: 118 kg

DRUGS (9)
  1. CERTICAN [Suspect]
     Indication: RENAL TRANSPLANT
     Dosage: 3 MG/DAY
     Route: 048
  2. AVANDIA [Suspect]
     Indication: DIABETES MELLITUS
     Dosage: 8 MG/DAY
     Route: 048
     Dates: start: 20060101
  3. MYFORTIC [Concomitant]
     Indication: RENAL TRANSPLANT
     Dosage: 720 MG/DAY
     Dates: start: 20060101
  4. APREDNISLON [Concomitant]
     Indication: RENAL TRANSPLANT
     Dosage: 2.5 MG/DAY
     Route: 048
     Dates: start: 20040101
  5. OMEPRAZOLE [Concomitant]
     Indication: GASTRITIS
     Dosage: 40 MG/DAY
     Route: 048
     Dates: start: 20040101
  6. DIAMICRON [Concomitant]
     Indication: DIABETES MELLITUS
     Dosage: 90 MG/DAY
     Route: 048
     Dates: start: 20060101
  7. LASIX [Concomitant]
     Indication: OEDEMA PERIPHERAL
     Dosage: 40 MG/DAY
     Route: 048
     Dates: start: 20060410
  8. PRAVASTATIN [Concomitant]
     Indication: HYPERCHOLESTEROLAEMIA
     Dosage: 40 MG/DAY
     Route: 048
     Dates: start: 20060101
  9. ACETYLSALICYLIC ACID SRT [Concomitant]
     Indication: CORONARY ARTERY DISEASE
     Dosage: 100 MG/DAY
     Route: 048
     Dates: start: 20060101

REACTIONS (3)
  - CARDIOPULMONARY FAILURE [None]
  - PNEUMONITIS [None]
  - PULMONARY OEDEMA [None]
